FAERS Safety Report 8450405-7 (Version None)
Quarter: 2012Q2

REPORT INFORMATION
  Report Type: 
  Country: None (occurrence: None)
  Receive Date: 20120620
  Receipt Date: 20120608
  Transmission Date: 20120825
  Serious: Yes (Other)
  Sender: FDA-Public Use
  Company Number: US-CELGENEUS-163-50794-12061464

PATIENT
  Sex: Female

DRUGS (15)
  1. BLOOD TRANSFUSIONS [Concomitant]
     Route: 065
  2. ARANESP [Concomitant]
     Dates: start: 20070614, end: 20120227
  3. VIDAZA [Suspect]
     Route: 065
     Dates: end: 20070601
  4. CALCIUM CARBONATE [Concomitant]
     Dosage: UNKLNOWN
     Dates: start: 20070614
  5. IMODIUM [Concomitant]
     Dates: start: 20070614, end: 20120227
  6. PEPCID [Concomitant]
     Dates: start: 20120614
  7. K LYTE CL [Concomitant]
     Dates: start: 20070614
  8. MULTI-VITAMINS [Concomitant]
     Dates: start: 20070614
  9. SYNTHROID [Concomitant]
     Dates: start: 20120614
  10. COMPAZINE [Concomitant]
     Dosage: UNKNOWN
     Dates: start: 20070614, end: 20120227
  11. DMB 5 [Concomitant]
     Dosage: UNKNOWN
     Dates: start: 20070614, end: 20120227
  12. AMOXIL [Concomitant]
     Dates: start: 20070614, end: 20120227
  13. LOMOTIL [Concomitant]
     Dates: start: 20070614
  14. BONIVA [Concomitant]
     Dates: start: 20070614
  15. LOVAZA [Concomitant]
     Dates: start: 20070614

REACTIONS (3)
  - TREATMENT FAILURE [None]
  - TOXICITY TO VARIOUS AGENTS [None]
  - BREAST CANCER IN SITU [None]
